FAERS Safety Report 25252789 (Version 12)
Quarter: 2025Q4

REPORT INFORMATION
  Report Type: Report from Study
  Country: EU (occurrence: EU)
  Receive Date: 20250429
  Receipt Date: 20251221
  Transmission Date: 20260118
  Serious: Yes (Hospitalization)
  Sender: ABBVIE
  Company Number: EU-ABBVIE-6181651

PATIENT
  Age: 75 Year
  Sex: Male

DRUGS (6)
  1. FOSCARBIDOPA\FOSLEVODOPA [Suspect]
     Active Substance: FOSCARBIDOPA\FOSLEVODOPA
     Indication: Parkinson^s disease
     Dosage: CRN: 0.20 ML/H, CR: 0.22 ML/H, CRH: 0.24 ML/H, ED: 0.10 ML
     Route: 058
     Dates: start: 202503, end: 202503
  2. FOSCARBIDOPA\FOSLEVODOPA [Suspect]
     Active Substance: FOSCARBIDOPA\FOSLEVODOPA
     Dosage: CRN: 0.20 ML/H, CRH: 0.26 ML/H, CR: 0.24 ML/H, ED: 0.20 ML
     Route: 058
     Dates: start: 20250306, end: 202503
  3. FOSCARBIDOPA\FOSLEVODOPA [Suspect]
     Active Substance: FOSCARBIDOPA\FOSLEVODOPA
     Dosage: CR: 0.24 ML/H CRH: 0.26 ML/H CRN: 0.20 ML/H ED: 0.20 ML
     Route: 058
     Dates: start: 2025, end: 20250404
  4. FOSCARBIDOPA\FOSLEVODOPA [Suspect]
     Active Substance: FOSCARBIDOPA\FOSLEVODOPA
     Dosage: 0.24 ML DAY, 0.2 ML AT NIGHT
     Route: 058
     Dates: start: 20250505, end: 2025
  5. FOSCARBIDOPA\FOSLEVODOPA [Suspect]
     Active Substance: FOSCARBIDOPA\FOSLEVODOPA
     Dosage: CRN: 0.20 ML/H, CR: 0.24 ML/H, CRH:0.26 ML/H, ED: 0.20 ML
     Route: 058
     Dates: start: 2025, end: 2025
  6. FOSCARBIDOPA\FOSLEVODOPA [Suspect]
     Active Substance: FOSCARBIDOPA\FOSLEVODOPA
     Dosage: CRN 0.20ML/H CR 0.25ML/H CRH 0.26ML/H ED: 0.20ML
     Route: 058
     Dates: start: 2025

REACTIONS (13)
  - Fall [Not Recovered/Not Resolved]
  - Inappropriate schedule of product administration [Unknown]
  - Headache [Not Recovered/Not Resolved]
  - Hallucination [Not Recovered/Not Resolved]
  - On and off phenomenon [Not Recovered/Not Resolved]
  - Pneumonia [Recovered/Resolved]
  - Spinal operation [Recovered/Resolved]
  - Spinal column injury [Not Recovered/Not Resolved]
  - Inflammation of wound [Recovered/Resolved]
  - Spinal operation [Recovered/Resolved]
  - Musculoskeletal stiffness [Recovering/Resolving]
  - Immobile [Recovering/Resolving]
  - Speech disorder [Recovering/Resolving]

NARRATIVE: CASE EVENT DATE: 20250101
